FAERS Safety Report 24464521 (Version 1)
Quarter: 2024Q4

REPORT INFORMATION
  Report Type: Report from Study
  Country: US (occurrence: US)
  Receive Date: 20241018
  Receipt Date: 20241018
  Transmission Date: 20250115
  Serious: No
  Sender: ROCHE
  Company Number: US-ROCHE-3495219

PATIENT
  Age: 64 Year
  Sex: Male

DRUGS (2)
  1. XOLAIR [Suspect]
     Active Substance: OMALIZUMAB
     Indication: Asthma
     Route: 058
  2. XOLAIR [Suspect]
     Active Substance: OMALIZUMAB
     Route: 058

REACTIONS (12)
  - Red cell distribution width increased [Unknown]
  - Blood immunoglobulin E increased [Unknown]
  - Blood immunoglobulin A increased [Unknown]
  - Lower respiratory tract congestion [Unknown]
  - Nasal congestion [Unknown]
  - Fatigue [Unknown]
  - Sinus congestion [Unknown]
  - Dysphonia [Unknown]
  - Rhinorrhoea [Unknown]
  - Orthopnoea [Unknown]
  - Off label use [Unknown]
  - Oedema [Unknown]
